FAERS Safety Report 6325859-2 (Version None)
Quarter: 2009Q3

REPORT INFORMATION
  Report Type: 
  Country: None (occurrence: None)
  Receive Date: 20090824
  Receipt Date: 20090820
  Transmission Date: 20100115
  Serious: Yes (Hospitalization)
  Sender: FDA-Public Use
  Company Number: SE-ABBOTT-09P-150-0592430-00

PATIENT
  Sex: Female

DRUGS (7)
  1. DEPAKENE [Suspect]
     Indication: DEPRESSION
     Route: 048
     Dates: start: 20090321, end: 20090325
  2. LAMOTRIGINE [Suspect]
     Indication: DEPRESSION
     Route: 048
     Dates: start: 20090312, end: 20090325
  3. ZOLOFT [Concomitant]
     Indication: BIPOLAR DISORDER
     Route: 048
     Dates: end: 20090228
  4. ZOLOFT [Concomitant]
     Route: 048
     Dates: start: 20090301, end: 20090311
  5. ZOLOFT [Concomitant]
     Dates: start: 20090312, end: 20090320
  6. ZOLOFT [Concomitant]
     Route: 048
  7. IKTORIVIL [Concomitant]
     Indication: DRUG USE FOR UNKNOWN INDICATION
     Route: 048
     Dates: end: 20090325

REACTIONS (1)
  - URTICARIA [None]
